FAERS Safety Report 23355179 (Version 3)
Quarter: 2024Q1

REPORT INFORMATION
  Report Type: Spontaneous
  Country: US (occurrence: US)
  Receive Date: 20240102
  Receipt Date: 20240307
  Transmission Date: 20240410
  Serious: Yes (Other)
  Sender: FDA-Public Use
  Company Number: US-ARDELYX-2023ARDX000977

PATIENT
  Sex: Female

DRUGS (5)
  1. IBSRELA [Suspect]
     Active Substance: TENAPANOR HYDROCHLORIDE
     Indication: Irritable bowel syndrome
     Dosage: 50 MILLIGRAM, BID
     Route: 048
     Dates: start: 20231118, end: 202402
  2. ZONISAMIDE [Concomitant]
     Active Substance: ZONISAMIDE
     Indication: Seizure
     Dosage: 300 MILLIGRAM, QD
  3. FAMOTIDINE [Concomitant]
     Active Substance: FAMOTIDINE
     Indication: Hyperchlorhydria
     Dosage: 40 MILLIGRAM, QD
  4. ESCITALOPRAM [Concomitant]
     Active Substance: ESCITALOPRAM OXALATE
     Indication: Depression
     Dosage: 20 MILLIGRAM, QD
  5. FENOFIBRATE [Concomitant]
     Active Substance: FENOFIBRATE
     Indication: Blood cholesterol increased
     Dosage: 48 MILLIGRAM, QD

REACTIONS (10)
  - Seizure [Unknown]
  - Abdominal pain lower [Unknown]
  - Night sweats [Unknown]
  - Body temperature fluctuation [Unknown]
  - Dry mouth [Unknown]
  - Amnesia [Unknown]
  - Vision blurred [Unknown]
  - Flatulence [Unknown]
  - Diarrhoea [Unknown]
  - Product use issue [Unknown]
